FAERS Safety Report 7238542-6 (Version None)
Quarter: 2011Q1

REPORT INFORMATION
  Report Type: 
  Country: None (occurrence: None)
  Receive Date: 20110119
  Receipt Date: 20110119
  Transmission Date: 20110831
  Serious: Yes (Hospitalization)
  Sender: FDA-Public Use
  Company Number: None

PATIENT
  Age: 90 Year
  Sex: Female
  Weight: 48.5349 kg

DRUGS (1)
  1. ERBITUX [Suspect]
     Indication: HEAD AND NECK CANCER
     Dosage: 362.5MG EVERY WEEK IV
     Route: 042
     Dates: start: 20100401, end: 20110112

REACTIONS (2)
  - SWOLLEN TONGUE [None]
  - OBSTRUCTIVE AIRWAYS DISORDER [None]
